FAERS Safety Report 16303075 (Version 2)
Quarter: 2021Q1

REPORT INFORMATION
  Report Type: Spontaneous
  Country: US (occurrence: US)
  Receive Date: 20190513
  Receipt Date: 20210219
  Transmission Date: 20210419
  Serious: Yes (Other)
  Sender: FDA-Public Use
  Company Number: US-ASTRAZENECA-2019SE63832

PATIENT
  Age: 59 Year
  Sex: Female
  Weight: 82.6 kg

DRUGS (44)
  1. NEXIUM [Suspect]
     Active Substance: ESOMEPRAZOLE MAGNESIUM
     Indication: GASTROOESOPHAGEAL REFLUX DISEASE
     Route: 048
     Dates: start: 199001, end: 200512
  2. PRILOSEC [Suspect]
     Active Substance: OMEPRAZOLE MAGNESIUM
     Indication: GASTROOESOPHAGEAL REFLUX DISEASE
     Route: 048
     Dates: start: 199001, end: 200512
  3. PREVACID [Suspect]
     Active Substance: LANSOPRAZOLE
     Indication: GASTROOESOPHAGEAL REFLUX DISEASE
     Route: 065
     Dates: start: 1990
  4. IBUPROFEN. [Concomitant]
     Active Substance: IBUPROFEN
     Indication: ANALGESIC THERAPY
     Dates: start: 20120427
  5. METRONIDAZOLE. [Concomitant]
     Active Substance: METRONIDAZOLE
  6. CEPHALEXIN. [Concomitant]
     Active Substance: CEPHALEXIN
  7. CYCLOBENZAPRINE. [Concomitant]
     Active Substance: CYCLOBENZAPRINE
  8. CLOPIDOGREL [Concomitant]
     Active Substance: CLOPIDOGREL BISULFATE
  9. FUROSEMIDE. [Concomitant]
     Active Substance: FUROSEMIDE
  10. DESLORATADINE. [Concomitant]
     Active Substance: DESLORATADINE
  11. PROVENTIL [Concomitant]
     Active Substance: ALBUTEROL
  12. GABAPENTIN. [Concomitant]
     Active Substance: GABAPENTIN
  13. NITROFURANTOIN. [Concomitant]
     Active Substance: NITROFURANTOIN
  14. PRILOSEC [Suspect]
     Active Substance: OMEPRAZOLE MAGNESIUM
     Indication: GASTROOESOPHAGEAL REFLUX DISEASE
     Route: 048
     Dates: start: 1990
  15. METOPROLOL. [Concomitant]
     Active Substance: METOPROLOL
  16. PREDNISONE. [Concomitant]
     Active Substance: PREDNISONE
  17. MECLIZINE [Concomitant]
     Active Substance: MECLIZINE HYDROCHLORIDE
  18. PROTONIX [Suspect]
     Active Substance: PANTOPRAZOLE SODIUM
     Indication: GASTROOESOPHAGEAL REFLUX DISEASE
     Route: 065
     Dates: start: 199001, end: 200512
  19. PROMETHAZINE [Concomitant]
     Active Substance: PROMETHAZINE HYDROCHLORIDE
  20. PRASUGREL. [Concomitant]
     Active Substance: PRASUGREL
  21. FEXOFENADINE [Concomitant]
     Active Substance: FEXOFENADINE HYDROCHLORIDE
  22. NITROGLYCERIN. [Concomitant]
     Active Substance: NITROGLYCERIN
  23. DOXYCYCLINE. [Concomitant]
     Active Substance: DOXYCYCLINE
  24. ONDANSETRON [Concomitant]
     Active Substance: ONDANSETRON
  25. SPIRIVA [Concomitant]
     Active Substance: TIOTROPIUM BROMIDE MONOHYDRATE
  26. LOSARTAN. [Concomitant]
     Active Substance: LOSARTAN
  27. VITAMIN D2 [Concomitant]
     Active Substance: ERGOCALCIFEROL
  28. PROTONIX [Suspect]
     Active Substance: PANTOPRAZOLE SODIUM
     Indication: GASTROOESOPHAGEAL REFLUX DISEASE
     Dosage: GENERIC
     Route: 065
  29. SERTRALINE [Concomitant]
     Active Substance: SERTRALINE HYDROCHLORIDE
  30. ESTRADIOL. [Concomitant]
     Active Substance: ESTRADIOL
  31. RANEXA [Concomitant]
     Active Substance: RANOLAZINE
  32. MYRBETRIQ [Concomitant]
     Active Substance: MIRABEGRON
  33. NIASPAN [Concomitant]
     Active Substance: NIACIN
  34. FLUCONAZOLE. [Concomitant]
     Active Substance: FLUCONAZOLE
  35. ROSUVASTATIN. [Concomitant]
     Active Substance: ROSUVASTATIN
  36. TRIAMCINOLONE [Concomitant]
     Active Substance: TRIAMCINOLONE
  37. ASPIRIN. [Concomitant]
     Active Substance: ASPIRIN
  38. NEXIUM [Suspect]
     Active Substance: ESOMEPRAZOLE MAGNESIUM
     Indication: GASTROOESOPHAGEAL REFLUX DISEASE
     Route: 048
     Dates: start: 2001
  39. PROTONIX [Suspect]
     Active Substance: PANTOPRAZOLE SODIUM
     Indication: GASTROOESOPHAGEAL REFLUX DISEASE
     Route: 065
     Dates: start: 2000, end: 2018
  40. AZITHROMYCIN ANHYDROUS. [Concomitant]
     Active Substance: AZITHROMYCIN ANHYDROUS
  41. LEVOFLOXACIN. [Concomitant]
     Active Substance: LEVOFLOXACIN
  42. NIFEDICAL XL [Concomitant]
     Active Substance: NIFEDIPINE
  43. DICLOFENAC SODIUM. [Concomitant]
     Active Substance: DICLOFENAC SODIUM
  44. OXYBUTYNIN. [Concomitant]
     Active Substance: OXYBUTYNIN CHLORIDE

REACTIONS (4)
  - Nephrogenic anaemia [Unknown]
  - Acute kidney injury [Not Recovered/Not Resolved]
  - Gastrooesophageal reflux disease [Not Recovered/Not Resolved]
  - Chronic kidney disease [Unknown]

NARRATIVE: CASE EVENT DATE: 2012
